FAERS Safety Report 6967151-9 (Version None)
Quarter: 2010Q3

REPORT INFORMATION
  Report Type: 
  Country: None (occurrence: None)
  Receive Date: 20100907
  Receipt Date: 20100827
  Transmission Date: 20110219
  Serious: Yes (Life-Threatening, Hospitalization)
  Sender: FDA-Public Use
  Company Number: US-BAYER-201032495NA

PATIENT
  Sex: Female

DRUGS (2)
  1. YAZ [Suspect]
     Indication: CONTRACEPTION
     Route: 065
  2. YASMIN [Suspect]
     Indication: CONTRACEPTION
     Route: 065

REACTIONS (2)
  - GALLBLADDER NON-FUNCTIONING [None]
  - ORGAN FAILURE [None]
